FAERS Safety Report 24259330 (Version 4)
Quarter: 2024Q4

REPORT INFORMATION
  Report Type: Report from Study
  Country: CO (occurrence: CO)
  Receive Date: 20240828
  Receipt Date: 20241202
  Transmission Date: 20250115
  Serious: Yes (Other)
  Sender: NOVARTIS
  Company Number: CO-002147023-NVSC2024CO129174

PATIENT
  Age: 46 Year
  Sex: Female
  Weight: 62 kg

DRUGS (8)
  1. KISQALI [Suspect]
     Active Substance: RIBOCICLIB
     Indication: Breast cancer metastatic
     Dosage: 600 MG, QD
     Route: 048
     Dates: start: 20200701
  2. KISQALI [Suspect]
     Active Substance: RIBOCICLIB
     Indication: Hormone receptor positive HER2 negative breast cancer
     Dosage: 600 MG, QD
     Route: 048
  3. KISQALI [Suspect]
     Active Substance: RIBOCICLIB
     Dosage: 600 MG, QD
     Route: 048
  4. KISQALI [Suspect]
     Active Substance: RIBOCICLIB
     Dosage: 600 MG, QD
     Route: 048
  5. FEMARA [Suspect]
     Active Substance: LETROZOLE
     Indication: Hormone receptor positive HER2 negative breast cancer
     Dosage: 2.5 MG, QD
     Route: 048
     Dates: start: 20200701, end: 202312
  6. FEMARA [Suspect]
     Active Substance: LETROZOLE
     Indication: Breast cancer metastatic
  7. FULVESTRANT [Concomitant]
     Active Substance: FULVESTRANT
     Indication: Product used for unknown indication
     Dosage: 500 MG, QMO
     Route: 058
  8. FULVESTRANT [Concomitant]
     Active Substance: FULVESTRANT
     Dosage: UNK, EVERY 28 DAYS
     Route: 065

REACTIONS (15)
  - Breast cancer metastatic [Unknown]
  - Malignant neoplasm progression [Unknown]
  - Breast mass [Not Recovered/Not Resolved]
  - Erythema [Unknown]
  - Haematoma [Not Recovered/Not Resolved]
  - Tumour marker abnormal [Unknown]
  - Human epidermal growth factor receptor positive [Not Recovered/Not Resolved]
  - Therapeutic response decreased [Unknown]
  - Pain [Not Recovered/Not Resolved]
  - Discomfort [Unknown]
  - Muscular weakness [Not Recovered/Not Resolved]
  - Blood blister [Not Recovered/Not Resolved]
  - Pain in extremity [Unknown]
  - Product distribution issue [Unknown]
  - Drug ineffective [Unknown]

NARRATIVE: CASE EVENT DATE: 20230501
